FAERS Safety Report 11343376 (Version 1)
Quarter: 2015Q3

REPORT INFORMATION
  Report Type: Spontaneous
  Country: SI (occurrence: SI)
  Receive Date: 20150806
  Receipt Date: 20150806
  Transmission Date: 20151125
  Serious: Yes (Death, Other)
  Sender: FDA-Public Use
  Company Number: SI-ACCORD-032703

PATIENT
  Age: 72 Year
  Sex: Male

DRUGS (1)
  1. CARBIDOPA/LEVODOPA [Suspect]
     Active Substance: CARBIDOPA\LEVODOPA
     Indication: PARKINSON^S DISEASE
     Dosage: LEVODOPA-CARBIDOPA INTESTINAL GEL (LCIG).

REACTIONS (5)
  - Completed suicide [Fatal]
  - Psychotic disorder [Recovered/Resolved]
  - Cognitive disorder [Unknown]
  - Depression [Recovered/Resolved]
  - Hallucination, visual [Recovered/Resolved]
